FAERS Safety Report 15971408 (Version 2)
Quarter: 2021Q1

REPORT INFORMATION
  Report Type: Spontaneous
  Country: US (occurrence: US)
  Receive Date: 20190215
  Receipt Date: 20210217
  Transmission Date: 20210419
  Serious: Yes (Other)
  Sender: FDA-Public Use
  Company Number: PHEH2019US006847

PATIENT
  Age: 55 Year
  Sex: Male

DRUGS (1)
  1. TASIGNA [Suspect]
     Active Substance: NILOTINIB
     Indication: CHRONIC MYELOID LEUKAEMIA
     Dosage: 150 MG, BID
     Route: 048
     Dates: start: 201310, end: 2018

REACTIONS (39)
  - Dry mouth [Unknown]
  - Peripheral venous disease [Unknown]
  - Mood swings [Unknown]
  - Depression [Unknown]
  - Gastrooesophageal reflux disease [Unknown]
  - Cerebral small vessel ischaemic disease [Unknown]
  - Pulmonary oedema [Unknown]
  - Oedema peripheral [Unknown]
  - Pruritus [Unknown]
  - Vision blurred [Unknown]
  - Essential hypertension [Unknown]
  - Trigeminal neuralgia [Unknown]
  - Cerebrovascular accident [Unknown]
  - Arthralgia [Unknown]
  - Headache [Unknown]
  - Eye pain [Unknown]
  - Weight decreased [Unknown]
  - Muscular weakness [Unknown]
  - Pain [Unknown]
  - Cerebral atrophy [Unknown]
  - Osteoarthritis [Unknown]
  - Chest pain [Unknown]
  - Nocturia [Unknown]
  - Anxiety [Unknown]
  - Peptic ulcer [Unknown]
  - Renal failure [Unknown]
  - Cerebral infarction [Unknown]
  - Injury [Unknown]
  - Emotional distress [Unknown]
  - Neck pain [Unknown]
  - Myalgia [Unknown]
  - Bone hypertrophy [Unknown]
  - Erectile dysfunction [Unknown]
  - Limb injury [Unknown]
  - Ulcer [Unknown]
  - Obesity [Unknown]
  - Dyspnoea [Unknown]
  - Hypertension [Unknown]
  - Arteriosclerosis [Unknown]

NARRATIVE: CASE EVENT DATE: 201404
